FAERS Safety Report 9416201 (Version 1)
Quarter: 2013Q3

REPORT INFORMATION
  Report Type: Spontaneous
  Country: DE (occurrence: None)
  Receive Date: 20130716
  Receipt Date: 20130716
  Transmission Date: 20140515
  Serious: Yes (Other)
  Sender: FDA-Public Use
  Company Number: 062-50794-13063020

PATIENT
  Age: 65 Year
  Sex: Female
  Weight: 61 kg

DRUGS (2)
  1. VIDAZA [Suspect]
     Indication: MYELODYSPLASTIC SYNDROME
     Dosage: DI-7, 7IN 4 WK, SC
     Route: 058
     Dates: start: 20121012
  2. ONDANSETRON (ONDANSETRON) [Concomitant]

REACTIONS (4)
  - Thrombophlebitis [None]
  - Application site induration [None]
  - Drug interaction [None]
  - Varicophlebitis [None]
